FAERS Safety Report 16475029 (Version 4)
Quarter: 2020Q2

REPORT INFORMATION
  Report Type: Report from Study
  Country: US (occurrence: US)
  Receive Date: 20190625
  Receipt Date: 20200409
  Transmission Date: 20200713
  Serious: Yes (Other)
  Sender: FDA-Public Use
  Company Number: US-BEH-2019101109

PATIENT
  Age: 43 Year
  Sex: Female

DRUGS (2)
  1. HIZENTRA [Suspect]
     Active Substance: HUMAN IMMUNOGLOBULIN G
     Indication: CHRONIC INFLAMMATORY DEMYELINATING POLYRADICULONEUROPATHY
     Dosage: 25 G (125 CC), QW
     Route: 065
     Dates: start: 201807, end: 20200115
  2. HIZENTRA [Suspect]
     Active Substance: HUMAN IMMUNOGLOBULIN G
     Dosage: 0.4 GRAM PER KILOGRAM
     Route: 058
     Dates: start: 20200328

REACTIONS (23)
  - Depressed mood [Unknown]
  - Pain in extremity [Unknown]
  - Vision blurred [Unknown]
  - Fatigue [Not Recovered/Not Resolved]
  - Guillain-Barre syndrome [Unknown]
  - Crying [Unknown]
  - Migraine [Unknown]
  - Bruxism [Unknown]
  - Dry mouth [Unknown]
  - Palpitations [Unknown]
  - Unevaluable event [Unknown]
  - Visual impairment [Unknown]
  - Malaise [Unknown]
  - Pain [Not Recovered/Not Resolved]
  - Emotional disorder [Unknown]
  - Hot flush [Unknown]
  - Pharyngeal hypoaesthesia [Unknown]
  - Loss of personal independence in daily activities [Unknown]
  - Incorrect dose administered [Unknown]
  - Inappropriate schedule of product administration [Unknown]
  - Hyperaesthesia teeth [Unknown]
  - Product use issue [Unknown]
  - Arthralgia [Not Recovered/Not Resolved]

NARRATIVE: CASE EVENT DATE: 201904
